FAERS Safety Report 25705901 (Version 1)
Quarter: 2025Q3

REPORT INFORMATION
  Report Type: Spontaneous
  Country: US (occurrence: None)
  Receive Date: 20250819
  Receipt Date: 20250819
  Transmission Date: 20251020
  Serious: Yes (Life-Threatening, Hospitalization)
  Sender: FDA-CTU
  Company Number: None

PATIENT
  Age: 75 Year
  Sex: Male

DRUGS (2)
  1. SULFAMETHOXAZOLE\TRIMETHOPRIM [Suspect]
     Active Substance: SULFAMETHOXAZOLE\TRIMETHOPRIM
  2. SULFAMETHOXAZOLE\TRIMETHOPRIM [Concomitant]
     Active Substance: SULFAMETHOXAZOLE\TRIMETHOPRIM

REACTIONS (9)
  - Headache [None]
  - Pyrexia [None]
  - Decreased appetite [None]
  - Confusional state [None]
  - Lumbar puncture abnormal [None]
  - CSF white blood cell count increased [None]
  - CSF glucose abnormal [None]
  - CSF protein abnormal [None]
  - Meningitis aseptic [None]

NARRATIVE: CASE EVENT DATE: 20250113
